FAERS Safety Report 5153391-0 (Version None)
Quarter: 2006Q4

REPORT INFORMATION
  Report Type: 
  Country: None (occurrence: None)
  Receive Date: 20061113
  Receipt Date: 20061102
  Transmission Date: 20070319
  Serious: Yes (Hospitalization)
  Sender: FDA-Public Use
  Company Number: HQWYE168102NOV06

PATIENT
  Age: 90 Year
  Sex: Female

DRUGS (15)
  1. PANTOPRAZOLE SODIUM [Suspect]
     Dosage: 40 MG 1X PER 1 DAY
     Route: 048
     Dates: end: 20060615
  2. AMLODIPINE BESYLATE [Suspect]
     Dosage: 5 MG 1X PER 1 DAY
     Route: 048
  3. BUFLOMEDIL (BUFLOMEDIL) [Suspect]
     Dosage: 300 MG 2X PER 1 DAY
     Route: 048
     Dates: end: 20060615
  4. FORLAX (MACROGOL) [Suspect]
     Dosage: 1 DOSAGE FORM 1X PER 1 DAY
     Route: 048
     Dates: end: 20060615
  5. MODURETIC 5-50 [Suspect]
     Dosage: 0.5 DOSAGE FORM 1X PER 1 DAY
     Route: 048
     Dates: end: 20060615
  6. PAROXETINE HCL [Suspect]
     Dosage: 10 MG 1X PER 1 DAY
     Route: 048
     Dates: start: 20060524, end: 20060614
  7. XALATAN [Concomitant]
  8. BROMAZEPAM [Concomitant]
  9. VASTAREL (TRIMETAZIDINE HYDROCHLORIDE) [Concomitant]
  10. PROTEIN SUPPLEMENTS [Concomitant]
  11. ... [Concomitant]
  12. '''' [Concomitant]
  13. PLAVIX [Concomitant]
  14. AMOXICILLIN TRIHYDRATE [Concomitant]
  15. FLAGYL [Concomitant]

REACTIONS (3)
  - HYPONATRAEMIA [None]
  - SIGMOIDITIS [None]
  - VOMITING [None]
